FAERS Safety Report 7861203-7 (Version None)
Quarter: 2011Q4

REPORT INFORMATION
  Report Type: 
  Country: None (occurrence: None)
  Receive Date: 20111027
  Receipt Date: 20111017
  Transmission Date: 20120403
  Serious: Yes (Other)
  Sender: FDA-Public Use
  Company Number: FR-ELI_LILLY_AND_COMPANY-FR201110004861

PATIENT
  Age: 44 Year
  Sex: Male

DRUGS (2)
  1. HUMALOG [Suspect]
     Route: 058
  2. HUMALOG MIX 75/25 [Suspect]
     Route: 058

REACTIONS (3)
  - DRUG DISPENSING ERROR [None]
  - SYNCOPE [None]
  - HYPOGLYCAEMIA [None]
